FAERS Safety Report 6819213-4 (Version None)
Quarter: 2010Q3

REPORT INFORMATION
  Report Type: 
  Country: None (occurrence: None)
  Receive Date: 20100707
  Receipt Date: 20100629
  Transmission Date: 20110219
  Serious: Yes (Death)
  Sender: FDA-Public Use
  Company Number: CZ-CELGENEUS-217-21880-10042706

PATIENT
  Age: 53 Year
  Sex: Male

DRUGS (6)
  1. REVLIMID [Suspect]
     Route: 048
     Dates: start: 20091126, end: 20100423
  2. DEXAMETHASONE [Suspect]
     Route: 065
     Dates: start: 20091126, end: 20100424
  3. CLEXANE [Concomitant]
     Indication: SUPRAVENTRICULAR TACHYARRHYTHMIA
     Route: 058
  4. ANOPYRIN [Concomitant]
     Indication: SUPRAVENTRICULAR TACHYARRHYTHMIA
     Route: 065
  5. CORDARONE [Concomitant]
     Indication: SUPRAVENTRICULAR TACHYARRHYTHMIA
     Route: 048
  6. BETALOC [Concomitant]
     Indication: SUPRAVENTRICULAR TACHYARRHYTHMIA
     Route: 065

REACTIONS (2)
  - CARDIAC FAILURE [None]
  - PULMONARY CONGESTION [None]
